FAERS Safety Report 13785549 (Version 1)
Quarter: 2017Q3

REPORT INFORMATION
  Report Type: Spontaneous
  Country: US (occurrence: US)
  Receive Date: 20170724
  Receipt Date: 20170724
  Transmission Date: 20171127
  Serious: Yes (Other)
  Sender: FDA-Public Use
  Company Number: None

PATIENT
  Age: 56 Year
  Sex: Female
  Weight: 62.1 kg

DRUGS (12)
  1. NASOCORT [Concomitant]
     Active Substance: BUDESONIDE
  2. MULTI VITAMIN [Concomitant]
     Active Substance: VITAMINS
  3. ZYRTEC [Concomitant]
     Active Substance: CETIRIZINE HYDROCHLORIDE
  4. FISH OIL [Concomitant]
     Active Substance: FISH OIL
  5. TRAZODONE [Concomitant]
     Active Substance: TRAZODONE HYDROCHLORIDE
  6. GLUCOSAMINE [Concomitant]
     Active Substance: GLUCOSAMINE
  7. JUICE PLUS NUTRITIONAL SUPPLEMENTS [Concomitant]
  8. PILMICORT [Concomitant]
  9. PREDNISONE. [Concomitant]
     Active Substance: PREDNISONE
  10. VITAMIN D AND C [Concomitant]
  11. LEVOFLOXACIN 500 MG [Suspect]
     Active Substance: LEVOFLOXACIN
     Indication: SINUSITIS
     Dosage: ?          OTHER STRENGTH:MG;QUANTITY:1 TABLET(S); DAILY ORAL?
     Route: 048
     Dates: start: 20170721, end: 20170723
  12. SINGULAIR [Concomitant]
     Active Substance: MONTELUKAST SODIUM

REACTIONS (5)
  - Dizziness [None]
  - Headache [None]
  - Paraesthesia [None]
  - Hypoaesthesia [None]
  - Blood pressure increased [None]

NARRATIVE: CASE EVENT DATE: 20170723
